FAERS Safety Report 8564973 (Version 2)
Quarter: 2016Q3

REPORT INFORMATION
  Report Type: Report from Study
  Country: US (occurrence: US)
  Receive Date: 20120516
  Receipt Date: 20160715
  Transmission Date: 20161109
  Serious: No
  Sender: FDA-Public Use
  Company Number: US-ALEXION-A201200298

PATIENT
  Age: 14 Year
  Sex: Male
  Weight: 105.6 kg

DRUGS (24)
  1. SOLIRIS [Suspect]
     Active Substance: ECULIZUMAB
     Indication: HAEMOLYTIC URAEMIC SYNDROME
     Dosage: 900 MG, QW
     Route: 042
     Dates: start: 20120122
  2. FUROSEMIDE. [Concomitant]
     Active Substance: FUROSEMIDE
     Dosage: 40 MG, UNK
     Route: 048
     Dates: end: 20160105
  3. NORVASC [Concomitant]
     Active Substance: AMLODIPINE BESYLATE
     Indication: PRODUCT USED FOR UNKNOWN INDICATION
     Dosage: 4 TABS OF 5MG, QD
     Route: 048
     Dates: end: 20150605
  4. AMOXICILLIN. [Concomitant]
     Active Substance: AMOXICILLIN
     Indication: PRODUCT USED FOR UNKNOWN INDICATION
     Dosage: 1 CAP, QD
     Route: 048
  5. FUROSEMIDE. [Concomitant]
     Active Substance: FUROSEMIDE
     Indication: PRODUCT USED FOR UNKNOWN INDICATION
     Dosage: 1 TAB, QD
     Route: 048
  6. SOLIRIS [Suspect]
     Active Substance: ECULIZUMAB
     Dosage: 300 MG, SINGLE
     Route: 042
     Dates: start: 20120122, end: 20120122
  7. NORVASC [Concomitant]
     Active Substance: AMLODIPINE BESYLATE
     Dosage: 10 MG, UNK
     Route: 048
  8. CLONIDINE. [Concomitant]
     Active Substance: CLONIDINE
     Dosage: 1 PATCH TO THE SKIN, EVERY 7 DAYS
     Route: 061
     Dates: end: 20160105
  9. SOLIRIS [Suspect]
     Active Substance: ECULIZUMAB
     Dosage: 1200 MG, Q2W
     Route: 042
     Dates: start: 201202
  10. CLONIDINE. [Concomitant]
     Active Substance: CLONIDINE
     Indication: HYPERTENSION
     Dosage: 0.2 MG, BEDTIME
     Route: 065
     Dates: end: 20150605
  11. PROCARDIA [Concomitant]
     Active Substance: NIFEDIPINE
     Indication: BLOOD PRESSURE INCREASED
     Dosage: 1 CAP, Q6H, AS NEEDED
     Route: 048
  12. CLONIDINE. [Concomitant]
     Active Substance: CLONIDINE
     Indication: PRODUCT USED FOR UNKNOWN INDICATION
     Dosage: 0.3 MG, QD
     Route: 061
  13. LISINOPRIL. [Concomitant]
     Active Substance: LISINOPRIL
     Indication: HYPERTENSION
     Dosage: 5 MG, QD
     Route: 048
  14. ATENOLOL. [Concomitant]
     Active Substance: ATENOLOL
     Indication: HYPERTENSION
     Dosage: 25 MG, 2 TABS, QD
     Route: 048
  15. CLONIDINE. [Concomitant]
     Active Substance: CLONIDINE
     Dosage: 2 TAB, EVERY NIGHT
     Route: 048
     Dates: end: 20140903
  16. PROCARDIA [Concomitant]
     Active Substance: NIFEDIPINE
     Dosage: 10 MG, UNK
     Route: 048
  17. CATAPRES                           /00171101/ [Concomitant]
     Active Substance: CLONIDINE
     Indication: PRODUCT USED FOR UNKNOWN INDICATION
     Dosage: 0.2 MG, PRN AT BEDTIME
     Route: 048
  18. ADDERALL [Concomitant]
     Active Substance: AMPHETAMINE ASPARTATE\AMPHETAMINE SULFATE\DEXTROAMPHETAMINE SACCHARATE\DEXTROAMPHETAMINE SULFATE
     Indication: ATTENTION DEFICIT/HYPERACTIVITY DISORDER
     Dosage: 20 MG, EVERY MORNING
     Route: 048
     Dates: end: 20160105
  19. AMLODIPINE [Concomitant]
     Active Substance: AMLODIPINE BESYLATE
     Dosage: 10 MG, UNK
     Route: 048
  20. CATAPRES                           /00171101/ [Concomitant]
     Active Substance: CLONIDINE
     Indication: PRODUCT USED FOR UNKNOWN INDICATION
     Dosage: 0.3 MG, UNK
     Route: 061
     Dates: end: 20160209
  21. OXYBUTYNIN [Concomitant]
     Active Substance: OXYBUTYNIN
     Indication: ENURESIS
     Dosage: 5 MG, QD, GIVE 2 TABS
     Route: 048
  22. OSCAL [Concomitant]
     Active Substance: CALCIUM CARBONATE
     Indication: PRODUCT USED FOR UNKNOWN INDICATION
     Dosage: 1 TAB, QD
     Route: 048
     Dates: end: 20150605
  23. AMLODIPINE [Concomitant]
     Active Substance: AMLODIPINE BESYLATE
     Indication: HYPERTENSION
     Dosage: 20 MG, 2 TAB, QD
     Route: 048
  24. LASIX [Concomitant]
     Active Substance: FUROSEMIDE
     Indication: HYPERTENSION
     Dosage: 40 MG, QD
     Route: 065

REACTIONS (4)
  - Incorrect dose administered [Recovered/Resolved]
  - Pruritus [Unknown]
  - Priapism [Unknown]
  - Rash [Unknown]

NARRATIVE: CASE EVENT DATE: 20120213
